FAERS Safety Report 12735393 (Version 1)
Quarter: 2016Q3

REPORT INFORMATION
  Report Type: Spontaneous
  Country: US (occurrence: US)
  Receive Date: 20160912
  Receipt Date: 20160912
  Transmission Date: 20161109
  Serious: No
  Sender: FDA-Public Use
  Company Number: US-ASTRAZENECA-2016SE92411

PATIENT
  Sex: Male
  Weight: 59 kg

DRUGS (4)
  1. PEPCID [Concomitant]
     Active Substance: FAMOTIDINE
     Dosage: 80 MG,UNKNOWN
  2. PRILOSEC OTC [Suspect]
     Active Substance: OMEPRAZOLE MAGNESIUM
     Indication: GASTROOESOPHAGEAL REFLUX DISEASE
     Route: 048
     Dates: start: 2007, end: 2007
  3. SUCRALFATE. [Concomitant]
     Active Substance: SUCRALFATE
  4. VALIUM [Concomitant]
     Active Substance: DIAZEPAM
     Indication: OESOPHAGEAL DISORDER

REACTIONS (6)
  - Dysphagia [Unknown]
  - Weight decreased [Unknown]
  - Chills [Unknown]
  - Abdominal pain upper [Unknown]
  - Chest discomfort [Unknown]
  - Malaise [Unknown]

NARRATIVE: CASE EVENT DATE: 2007
